FAERS Safety Report 19892494 (Version 1)
Quarter: 2021Q3

REPORT INFORMATION
  Report Type: Spontaneous
  Country: CN (occurrence: CN)
  Receive Date: 20210928
  Receipt Date: 20210928
  Transmission Date: 20211014
  Serious: Yes (Other)
  Sender: FDA-Public Use
  Company Number: CN-ASTRAZENECA-2021A745142

PATIENT
  Age: 24107 Day
  Sex: Male

DRUGS (1)
  1. QUETIAPINE FUMARATE. [Suspect]
     Active Substance: QUETIAPINE FUMARATE
     Indication: PERSONALITY CHANGE DUE TO A GENERAL MEDICAL CONDITION
     Route: 048
     Dates: start: 20210531, end: 20210603

REACTIONS (3)
  - Lacunar infarction [Unknown]
  - Urinary retention [Unknown]
  - Benign prostatic hyperplasia [Unknown]

NARRATIVE: CASE EVENT DATE: 20210603
